FAERS Safety Report 9831818 (Version 1)
Quarter: 2014Q1

REPORT INFORMATION
  Report Type: Spontaneous
  Country: SG (occurrence: SG)
  Receive Date: 20140121
  Receipt Date: 20140121
  Transmission Date: 20141002
  Serious: Yes (Other)
  Sender: FDA-Public Use
  Company Number: SG-UCBSA-109323

PATIENT
  Sex: Male

DRUGS (4)
  1. OMEPRAZOLE [Suspect]
  2. IMIPENEM + CILASTATIN SODIUM [Suspect]
  3. PIPERACILLIN SODIUM [Suspect]
  4. VANCOMYCIN [Suspect]

REACTIONS (1)
  - Drug reaction with eosinophilia and systemic symptoms [Unknown]
